FAERS Safety Report 9112380 (Version 1)
Quarter: 2013Q1

REPORT INFORMATION
  Report Type: Spontaneous
  Country: US (occurrence: US)
  Receive Date: 20130219
  Receipt Date: 20130219
  Transmission Date: 20140127
  Serious: No
  Sender: FDA-Public Use
  Company Number: US-BRISTOL-MYERS SQUIBB COMPANY-16856460

PATIENT
  Age: 57 Year
  Sex: Male
  Weight: 86.17 kg

DRUGS (1)
  1. ORENCIA [Suspect]
     Indication: RHEUMATOID ARTHRITIS
     Route: 058
     Dates: start: 20120811

REACTIONS (8)
  - Headache [Unknown]
  - Back pain [Unknown]
  - Depression [Unknown]
  - Cough [Unknown]
  - Nausea [Unknown]
  - Insomnia [Unknown]
  - Neck pain [Unknown]
  - Musculoskeletal pain [Unknown]
